FAERS Safety Report 13163838 (Version 1)
Quarter: 2017Q1

REPORT INFORMATION
  Report Type: Spontaneous
  Country: GB (occurrence: GB)
  Receive Date: 20170130
  Receipt Date: 20170130
  Transmission Date: 20170428
  Serious: Yes (Life-Threatening, Disabling, Other)
  Sender: FDA-Public Use
  Company Number: GB-PFIZER INC-2017033719

PATIENT
  Age: 47 Year
  Sex: Male
  Weight: 78.1 kg

DRUGS (2)
  1. GLICLAZIDE [Concomitant]
     Active Substance: GLICLAZIDE
     Dosage: UNK
  2. ANADIN ULTRA [Suspect]
     Active Substance: IBUPROFEN
     Indication: HEADACHE
     Dosage: UNK

REACTIONS (5)
  - Depressed mood [Unknown]
  - Drug ineffective [Unknown]
  - Fatigue [Unknown]
  - Reaction to drug excipients [Unknown]
  - Visual impairment [Unknown]
